FAERS Safety Report 8059679-8 (Version None)
Quarter: 2012Q1

REPORT INFORMATION
  Report Type: 
  Country: None (occurrence: None)
  Receive Date: 20120120
  Receipt Date: 20120113
  Transmission Date: 20120608
  Serious: Yes (Life-Threatening, Hospitalization, Disabling)
  Sender: FDA-Public Use
  Company Number: PHHY2012BE001163

PATIENT
  Sex: Male

DRUGS (5)
  1. VOLTAREN [Suspect]
     Dosage: 75 MG  (1 INJECTION IN LEFT BUTTOCK)
     Route: 030
     Dates: start: 20060316
  2. CHLOROQUINE PHOSPHATE [Concomitant]
     Dosage: 800 MG, UNK
     Dates: start: 20060315
  3. VOLTAREN [Suspect]
     Dosage: 75 MG  (1 INJECTION IN RIGHT BUTTOCK)
     Route: 030
     Dates: start: 20060317
  4. CHLOROQUINE PHOSPHATE [Concomitant]
     Dosage: 600 MG, UNK
     Dates: start: 20060316
  5. VOLTAREN [Suspect]
     Indication: MYALGIA
     Dosage: 75 MG, BID (2 INJECTION)
     Route: 030
     Dates: start: 20060315

REACTIONS (21)
  - GAIT DISTURBANCE [None]
  - SWELLING [None]
  - RED BLOOD CELL SEDIMENTATION RATE INCREASED [None]
  - HEART RATE INCREASED [None]
  - STREPTOCOCCAL INFECTION [None]
  - RENAL FAILURE [None]
  - HYPOTENSION [None]
  - BLOOD CREATININE INCREASED [None]
  - RENAL IMPAIRMENT [None]
  - INFLAMMATION [None]
  - NEUTROPHIL COUNT INCREASED [None]
  - COMA [None]
  - NECROTISING FASCIITIS [None]
  - BLOOD UREA INCREASED [None]
  - MUSCULOSKELETAL PAIN [None]
  - MUSCLE NECROSIS [None]
  - GLOMERULAR FILTRATION RATE DECREASED [None]
  - WHITE BLOOD CELL COUNT INCREASED [None]
  - C-REACTIVE PROTEIN INCREASED [None]
  - LYMPHOCYTE COUNT DECREASED [None]
  - MONOCYTE COUNT INCREASED [None]
